FAERS Safety Report 6971716-8 (Version None)
Quarter: 2010Q3

REPORT INFORMATION
  Report Type: 
  Country: None (occurrence: None)
  Receive Date: 20100908
  Receipt Date: 20100902
  Transmission Date: 20110219
  Serious: Yes (Life-Threatening, Hospitalization)
  Sender: FDA-Public Use
  Company Number: US-ELI_LILLY_AND_COMPANY-US201009000740

PATIENT
  Sex: Male

DRUGS (15)
  1. GEMCITABINE HCL [Suspect]
     Indication: PANCREATIC CARCINOMA
     Dosage: 1000 MG/M2, (2040 MG)
     Route: 065
     Dates: start: 20091208
  2. ATENOLOL [Concomitant]
     Indication: HYPERTENSION
     Route: 048
     Dates: start: 19940101
  3. DILTIAZEM [Concomitant]
     Indication: CORONARY ARTERY DISEASE
     Dosage: UNK, UNK
     Route: 048
     Dates: start: 19990101
  4. GLYBURIDE [Concomitant]
     Indication: DIABETES MELLITUS
     Route: 048
     Dates: start: 20040101
  5. OMEPRAZOLE [Concomitant]
     Indication: DYSPEPSIA
     Route: 048
     Dates: start: 20090601
  6. SIMVASTATIN [Concomitant]
     Indication: HYPERCHOLESTEROLAEMIA
     Route: 048
     Dates: start: 20080101
  7. TYLENOL PM [Concomitant]
     Indication: ABDOMINAL PAIN
     Route: 048
  8. TYLENOL W/ CODEINE NO. 3 [Concomitant]
     Indication: ABDOMINAL PAIN
     Route: 048
  9. MORPHINE SULFATE [Concomitant]
     Indication: ABDOMINAL PAIN
     Route: 048
     Dates: start: 20091111
  10. LANTUS [Concomitant]
     Indication: DIABETES MELLITUS
     Route: 058
     Dates: start: 20070101
  11. MILK OF MAGNESIA TAB [Concomitant]
     Indication: CONSTIPATION
     Route: 048
     Dates: start: 20090101
  12. BISACODYL [Concomitant]
     Indication: CONSTIPATION
     Route: 054
     Dates: start: 20091216
  13. COMPAZINE [Concomitant]
     Indication: NAUSEA
     Route: 048
     Dates: start: 20091221
  14. METFORMIN HCL [Concomitant]
     Indication: DIABETES MELLITUS
     Route: 048
     Dates: start: 20100325
  15. NITROGLYCERIN [Concomitant]
     Indication: CHEST PAIN

REACTIONS (2)
  - CARDIO-RESPIRATORY ARREST [None]
  - MYOCARDIAL ISCHAEMIA [None]
